FAERS Safety Report 16411779 (Version 1)
Quarter: 2019Q2

REPORT INFORMATION
  Report Type: Report from Study
  Country: FR (occurrence: FR)
  Receive Date: 20190610
  Receipt Date: 20190610
  Transmission Date: 20190711
  Serious: Yes (Hospitalization, Other)
  Sender: FDA-Public Use
  Company Number: FR-MYLANLABS-2019M1053223

PATIENT
  Age: 75 Year
  Sex: Female
  Weight: 61 kg

DRUGS (4)
  1. CARBOPLATIN. [Suspect]
     Active Substance: CARBOPLATIN
     Indication: HODGKIN^S DISEASE
     Dosage: UNK
     Route: 042
     Dates: start: 20180320, end: 20180501
  2. ADCETRIS [Suspect]
     Active Substance: BRENTUXIMAB VEDOTIN
     Indication: HODGKIN^S DISEASE
     Dosage: 110 MG, CYCLIC
     Route: 042
     Dates: start: 20180319, end: 20180924
  3. IFOSFAMIDE. [Suspect]
     Active Substance: IFOSFAMIDE
     Indication: HODGKIN^S DISEASE
     Dosage: UNK
     Route: 042
     Dates: start: 20180321
  4. ETOPOSIDE. [Suspect]
     Active Substance: ETOPOSIDE
     Indication: HODGKIN^S DISEASE
     Dosage: UNK
     Route: 042
     Dates: start: 20180319, end: 20180502

REACTIONS (8)
  - Thrombocytopenia [Recovered/Resolved]
  - Neuropathy peripheral [Not Recovered/Not Resolved]
  - Off label use [Unknown]
  - Febrile neutropenia [Recovered/Resolved]
  - Toxicity to various agents [Unknown]
  - Hepatocellular injury [Recovered/Resolved]
  - Infection [Recovered/Resolved]
  - Anaemia [Recovered/Resolved]

NARRATIVE: CASE EVENT DATE: 201803
